FAERS Safety Report 22216170 (Version 4)
Quarter: 2023Q2

REPORT INFORMATION
  Report Type: Spontaneous
  Country: US (occurrence: US)
  Receive Date: 20230417
  Receipt Date: 20230612
  Transmission Date: 20230721
  Serious: Yes (Hospitalization)
  Sender: FDA-Public Use
  Company Number: US-SA-SAC20230414000306

PATIENT
  Age: 71 Year
  Sex: Male

DRUGS (4)
  1. DUPIXENT [Suspect]
     Active Substance: DUPILUMAB
     Indication: Dermatitis atopic
     Dosage: 300 MG, QOW
     Route: 058
     Dates: start: 20221216
  2. TRELEGY ELLIPTA [Suspect]
     Active Substance: FLUTICASONE FUROATE\UMECLIDINIUM BROMIDE\VILANTEROL TRIFENATATE
     Dosage: UNK
  3. ADVAIR HFA [Concomitant]
     Active Substance: FLUTICASONE PROPIONATE\SALMETEROL XINAFOATE
     Dosage: UNK
  4. COMBIVENT [Concomitant]
     Active Substance: ALBUTEROL SULFATE\IPRATROPIUM BROMIDE
     Dosage: UNK

REACTIONS (16)
  - Chronic obstructive pulmonary disease [Recovering/Resolving]
  - Dyspnoea [Recovering/Resolving]
  - Neck pain [Recovering/Resolving]
  - Nasal congestion [Unknown]
  - Peripheral swelling [Unknown]
  - Joint swelling [Unknown]
  - Eyelid infection [Recovering/Resolving]
  - Muscle twitching [Recovering/Resolving]
  - Vision blurred [Unknown]
  - Eye swelling [Recovering/Resolving]
  - Arthralgia [Recovering/Resolving]
  - Rash pruritic [Unknown]
  - Eye pruritus [Recovering/Resolving]
  - Cough [Unknown]
  - Respiration abnormal [Unknown]
  - Oropharyngeal discomfort [Unknown]

NARRATIVE: CASE EVENT DATE: 20230301
